FAERS Safety Report 8459436-4 (Version None)
Quarter: 2012Q2

REPORT INFORMATION
  Report Type: 
  Country: None (occurrence: None)
  Receive Date: 20120622
  Receipt Date: 20120615
  Transmission Date: 20120825
  Serious: Yes (Hospitalization, Other)
  Sender: FDA-Public Use
  Company Number: JP-PFIZER INC-2012122731

PATIENT
  Age: 81 Year
  Sex: Male
  Weight: 62.7 kg

DRUGS (7)
  1. LYRICA [Suspect]
     Indication: BACK PAIN
     Dosage: 25 MG, 1X/DAY
     Route: 048
     Dates: start: 20111102, end: 20111108
  2. RADEN [Concomitant]
     Indication: GASTRIC ULCER
     Dosage: 150 MG, 1X/DAY
     Route: 048
  3. LYRICA [Suspect]
     Dosage: 25 MG, 3X/DAY
     Route: 048
     Dates: start: 20111109, end: 20111128
  4. NIFELAT L [Concomitant]
     Indication: HYPERTENSION
     Dosage: 20 MG, 1X/DAY (10 MG ONLY ON DAYS OF DIALYSIS)
     Route: 048
  5. OLMESARTAN MEDOXOMIL [Concomitant]
     Indication: HYPERTENSION
     Dosage: 20 MG,  EXCEPT THE DAYS OF DIALYSIS
     Route: 048
  6. ISOSORBIDE DINITRATE [Concomitant]
     Indication: HYPERTENSION
     Dosage: 40 MG, 1X/DAY
     Route: 062
  7. ASPIRIN [Concomitant]
     Indication: PERIPHERAL ARTERIAL OCCLUSIVE DISEASE
     Dosage: 100 MG, 1X/DAY
     Route: 048

REACTIONS (5)
  - DYSARTHRIA [None]
  - MYOCLONUS [None]
  - PAIN [None]
  - ALTERED STATE OF CONSCIOUSNESS [None]
  - CEREBRAL INFARCTION [None]
